FAERS Safety Report 8851999 (Version 1)
Quarter: 2012Q4

REPORT INFORMATION
  Report Type: 
  Country: US (occurrence: US)
  Receive Date: 20121022
  Receipt Date: 20121022
  Transmission Date: 20130627
  Serious: Yes (Hospitalization, Other)
  Sender: FDA-Public Use
  Company Number: US-009507513-2011SP003700

PATIENT

DRUGS (1)
  1. NUVARING [Suspect]
     Indication: CONTRACEPTION
     Dates: start: 200901, end: 200902

REACTIONS (8)
  - Pneumonia [Recovering/Resolving]
  - Ovarian cyst [Unknown]
  - Hypercoagulation [Unknown]
  - Pleural effusion [Recovering/Resolving]
  - Pulmonary infarction [Recovering/Resolving]
  - Pulmonary embolism [Recovering/Resolving]
  - Frustration [Unknown]
  - Mental disorder [Unknown]
